FAERS Safety Report 5040505-6 (Version None)
Quarter: 2006Q2

REPORT INFORMATION
  Report Type: 
  Country: None (occurrence: None)
  Receive Date: 20060630
  Receipt Date: 20060515
  Transmission Date: 20061013
  Serious: Yes (Other)
  Sender: FDA-Public Use
  Company Number: US-ROCHE-448626

PATIENT
  Age: 67 Year
  Sex: Female
  Weight: 99.8 kg

DRUGS (1)
  1. BONIVA [Suspect]
     Indication: OSTEOPOROSIS
     Route: 048
     Dates: start: 20051001, end: 20060201

REACTIONS (1)
  - GASTROOESOPHAGEAL REFLUX DISEASE [None]
